FAERS Safety Report 22155554 (Version 1)
Quarter: 2023Q1

REPORT INFORMATION
  Report Type: Spontaneous
  Country: US (occurrence: None)
  Receive Date: 20230330
  Receipt Date: 20230330
  Transmission Date: 20230418
  Serious: No
  Sender: FDA-Public Use
  Company Number: None

PATIENT
  Sex: Female

DRUGS (1)
  1. AMBRISENTAN [Suspect]
     Active Substance: AMBRISENTAN
     Indication: Pulmonary arterial hypertension
     Dosage: FREQUENCY : DAILY;?
     Route: 048

REACTIONS (18)
  - Fatigue [None]
  - Pneumonia [None]
  - Gait disturbance [None]
  - Depressed mood [None]
  - Blood sodium decreased [None]
  - Dyspnoea [None]
  - Balance disorder [None]
  - Hypophagia [None]
  - Herpes zoster [None]
  - Rotator cuff syndrome [None]
  - Weight decreased [None]
  - Abdominal distension [None]
  - Initial insomnia [None]
  - Asthenia [None]
  - Fatigue [None]
  - Decreased appetite [None]
  - Morbid thoughts [None]
  - Suicidal ideation [None]
